APPROVED DRUG PRODUCT: SODIUM BICARBONATE
Active Ingredient: SODIUM BICARBONATE
Strength: 50MEQ/50ML (1MEQ/ML)
Dosage Form/Route: SOLUTION;INTRAVENOUS
Application: A202432 | Product #001 | TE Code: AP
Applicant: HOSPIRA INC
Approved: Sep 26, 2017 | RLD: No | RS: No | Type: RX